FAERS Safety Report 8664953 (Version 2)
Quarter: 2012Q4

REPORT INFORMATION
  Report Type: 
  Country: FR (occurrence: FR)
  Receive Date: 20120714
  Receipt Date: 20120925
  Transmission Date: 20130627
  Serious: Yes (Life-Threatening, Other)
  Sender: FDA-Public Use
  Company Number: PHHY2012FR059917

PATIENT
  Age: 73 Year
  Sex: Female

DRUGS (10)
  1. VANCOMYCIN [Suspect]
     Indication: DEVICE RELATED INFECTION
     Dosage: 1 g, TID
     Route: 042
     Dates: start: 20120518, end: 20120618
  2. LOSARTAN POTASSIUM [Suspect]
     Indication: HYPERTENSION
     Dosage: 100 mg, QD
     Route: 048
     Dates: start: 20120618
  3. GENTAMICIN [Suspect]
     Dosage: 320 mg, QD
     Route: 048
     Dates: start: 20120518, end: 20120618
  4. BI-PROFENID [Suspect]
     Dosage: 1 DF, BID
     Route: 048
     Dates: start: 20120618
  5. LASILIX [Suspect]
     Dosage: 1 DF, QD
     Route: 048
  6. SPIRONOLACTONE [Concomitant]
     Dosage: 50 mg, QD
     Dates: start: 20120618
  7. CEFTRIAXONE [Concomitant]
     Dosage: 3 g daily
  8. TOPALGIC [Concomitant]
     Dosage: 100 mg, BID
     Dates: start: 20120618
  9. SITAGLIPTIN [Concomitant]
     Dosage: 100 mg, QD
     Dates: start: 20120618
  10. EUPRESSYL [Concomitant]
     Dosage: 30 mg, QD

REACTIONS (10)
  - Renal tubular necrosis [Not Recovered/Not Resolved]
  - Renal failure acute [Recovered/Resolved]
  - Anuria [Not Recovered/Not Resolved]
  - Oliguria [Unknown]
  - Oedema peripheral [Not Recovered/Not Resolved]
  - Weight increased [Not Recovered/Not Resolved]
  - Blood pressure increased [Unknown]
  - Drug interaction [Unknown]
  - Body temperature increased [Unknown]
  - Drug administration error [Unknown]
